FAERS Safety Report 5918999-0 (Version None)
Quarter: 2008Q4

REPORT INFORMATION
  Report Type: 
  Country: None (occurrence: None)
  Receive Date: 20081014
  Receipt Date: 20081014
  Transmission Date: 20090506
  Serious: Yes (Other)
  Sender: FDA-Public Use
  Company Number: None

PATIENT
  Age: 59 Year
  Sex: Male
  Weight: 117.4816 kg

DRUGS (2)
  1. PAXIL [Suspect]
     Indication: ANXIETY
     Dosage: 40MG 1 X DAILY IN AM PO
     Route: 048
     Dates: start: 20080601, end: 20080604
  2. PAXIL [Suspect]
     Indication: DEPRESSION
     Dosage: 40MG 1 X DAILY IN AM PO
     Route: 048
     Dates: start: 20080601, end: 20080604

REACTIONS (2)
  - DRUG WITHDRAWAL SYNDROME [None]
  - THERAPEUTIC RESPONSE UNEXPECTED WITH DRUG SUBSTITUTION [None]
